FAERS Safety Report 10092597 (Version 1)
Quarter: 2014Q2

REPORT INFORMATION
  Report Type: Spontaneous
  Country: US (occurrence: US)
  Receive Date: 20140421
  Receipt Date: 20140421
  Transmission Date: 20141212
  Serious: No
  Sender: FDA-Public Use
  Company Number: US-SANOFI-AVENTIS-2013SA057760

PATIENT
  Age: 61 Year
  Sex: Female
  Weight: 54.43 kg

DRUGS (4)
  1. ALLEGRA [Suspect]
     Indication: HYPERSENSITIVITY
     Dosage: TAKEN FROM:2 WEEKS AGO
     Route: 048
  2. CITRACAL [Concomitant]
     Dates: start: 2000
  3. CONTRAMAL [Concomitant]
     Dates: start: 2011
  4. ANISE OIL [Concomitant]
     Dates: start: 2012

REACTIONS (1)
  - Drug ineffective [Unknown]
